FAERS Safety Report 9172472 (Version 1)
Quarter: 2013Q1

REPORT INFORMATION
  Report Type: Spontaneous
  Country: GB (occurrence: GB)
  Receive Date: 20130319
  Receipt Date: 20130319
  Transmission Date: 20140127
  Serious: Yes (Other)
  Sender: FDA-Public Use
  Company Number: GB-PFIZER INC-2013086014

PATIENT
  Age: 38 Year
  Sex: Female
  Weight: 69.39 kg

DRUGS (5)
  1. SULFASALAZINE [Suspect]
     Indication: PSORIATIC ARTHROPATHY
     Dosage: 1 G, 2X/DAY
     Route: 048
     Dates: start: 20000315, end: 20130210
  2. HUMIRA [Suspect]
     Dosage: UNK
  3. PARACETAMOL [Concomitant]
  4. ETORICOXIB [Concomitant]
  5. OMEPRAZOLE [Concomitant]

REACTIONS (2)
  - Headache [Recovered/Resolved]
  - Tremor [Recovered/Resolved]
